FAERS Safety Report 17260759 (Version 5)
Quarter: 2020Q2

REPORT INFORMATION
  Report Type: Report from Study
  Country: BR (occurrence: BR)
  Receive Date: 20200113
  Receipt Date: 20200528
  Transmission Date: 20200713
  Serious: Yes (Other)
  Sender: FDA-Public Use
  Company Number: BR-ROCHE-2517856

PATIENT
  Age: 75 Year
  Sex: Male

DRUGS (31)
  1. LACTULOSE. [Concomitant]
     Active Substance: LACTULOSE
     Indication: CONSTIPATION
     Route: 048
     Dates: start: 20190823
  2. MORPHINE [Concomitant]
     Active Substance: MORPHINE
     Indication: CHEST PAIN
     Route: 048
     Dates: start: 20190830, end: 20190906
  3. DIPYRONE [Concomitant]
     Active Substance: DIPYRONE
     Route: 042
     Dates: start: 20200118, end: 20200127
  4. BUDESONIDE;FORMOTEROL [Concomitant]
     Active Substance: BUDESONIDE\FORMOTEROL
     Indication: EMPHYSEMA
     Dosage: 24/800 MCG, ?12/400 UG. (INHALED).
     Route: 065
  5. MORPHINE [Concomitant]
     Active Substance: MORPHINE
     Route: 048
     Dates: start: 20200126, end: 20200127
  6. BROMOPRIDE [Concomitant]
     Active Substance: BROMOPRIDE
     Indication: NAUSEA
     Route: 048
     Dates: start: 20190816
  7. VALERIAN [Concomitant]
     Active Substance: VALERIAN
     Indication: ANXIETY
     Route: 048
     Dates: start: 20191010, end: 20191011
  8. VALERIAN [Concomitant]
     Active Substance: VALERIAN
     Route: 048
     Dates: start: 20191211
  9. AMOXICILLIN + CLAVULANIC ACID [Concomitant]
     Active Substance: AMOXICILLIN\CLAVULANIC ACID
     Route: 042
     Dates: start: 20200120, end: 20200126
  10. CLARITROMYCINE [Concomitant]
     Active Substance: CLARITHROMYCIN
     Indication: PNEUMONIA
     Route: 042
     Dates: start: 20200118, end: 20200123
  11. IPRATROPIUM [Concomitant]
     Active Substance: IPRATROPIUM
     Indication: PNEUMONIA
     Route: 045
     Dates: start: 20200119, end: 20200127
  12. CARBOPLATIN. [Suspect]
     Active Substance: CARBOPLATIN
     Indication: MALIGNANT NEOPLASM OF UNKNOWN PRIMARY SITE
     Dosage: DATE OF LAST DOSE OF CARBOPLATIN PRIOR TO SAE/AESI ONSET: 12/DEC/2019.?DOSE OF LAST CARBOPLATIN ADMI
     Route: 042
     Dates: start: 20191212
  13. UMECLIDINIUM [Concomitant]
     Active Substance: UMECLIDINIUM BROMIDE
     Indication: EMPHYSEMA
     Dosage: INHALED
     Route: 065
  14. HYDROXYZINE [Concomitant]
     Active Substance: HYDROXYZINE HYDROCHLORIDE
     Indication: RASH
     Route: 048
     Dates: start: 20190827
  15. MORPHINE [Concomitant]
     Active Substance: MORPHINE
     Route: 048
     Dates: start: 20200119, end: 20200125
  16. IPRATROPIUM [Concomitant]
     Active Substance: IPRATROPIUM
     Route: 045
     Dates: start: 20200118, end: 20200118
  17. HYDROCORTISONE. [Concomitant]
     Active Substance: HYDROCORTISONE
     Indication: PNEUMONIA
     Route: 042
     Dates: start: 20200118, end: 20200119
  18. FENOTEROL [Concomitant]
     Active Substance: FENOTEROL
     Indication: DYSPNOEA
     Route: 045
     Dates: start: 20200118, end: 20200118
  19. PACLITAXEL. [Suspect]
     Active Substance: PACLITAXEL
     Indication: MALIGNANT NEOPLASM OF UNKNOWN PRIMARY SITE
     Dosage: DATE OF FIRST DOSE OF PACLITAXEL ADMINISTERED PRIOR TO SAE/AESI ONSET: 12/DEC/2019.?DOSE OF LAST PAC
     Route: 042
     Dates: start: 20191212
  20. HYDROCORTISONE. [Concomitant]
     Active Substance: HYDROCORTISONE
     Route: 042
     Dates: start: 20200120, end: 20200121
  21. N-ACETYLCYSTEINE [Concomitant]
     Active Substance: ACETYLCYSTEINE
     Indication: PNEUMONIA
     Route: 042
     Dates: start: 20200118, end: 20200127
  22. BUPROPION. [Concomitant]
     Active Substance: BUPROPION
     Route: 048
  23. MORPHINE [Concomitant]
     Active Substance: MORPHINE
     Route: 048
     Dates: start: 20190907, end: 20190910
  24. MORPHINE [Concomitant]
     Active Substance: MORPHINE
     Route: 048
     Dates: start: 20190911
  25. MORPHINE [Concomitant]
     Active Substance: MORPHINE
     Route: 048
     Dates: start: 20200118, end: 20200118
  26. LACTULOSE. [Concomitant]
     Active Substance: LACTULOSE
     Route: 048
     Dates: start: 20191120
  27. AMOXICILLIN + CLAVULANIC ACID [Concomitant]
     Active Substance: AMOXICILLIN\CLAVULANIC ACID
     Indication: PNEUMONIA
     Route: 042
     Dates: start: 20200118, end: 20200119
  28. ATEZOLIZUMAB. [Suspect]
     Active Substance: ATEZOLIZUMAB
     Indication: MALIGNANT NEOPLASM OF UNKNOWN PRIMARY SITE
     Dosage: DATE OF LAST DOSE OF ATEZOLIZUMAB PRIOR TO SAE/AESI ONSET: 12/DEC/2019?DOSE OF LAST ATEZOLIZUMAB ADM
     Route: 042
     Dates: start: 20191212
  29. PANTOPRAZOLE [Concomitant]
     Active Substance: PANTOPRAZOLE
     Indication: PROPHYLAXIS
     Route: 048
     Dates: start: 20190907
  30. DIPYRONE [Concomitant]
     Active Substance: DIPYRONE
     Indication: CHEST PAIN
     Route: 048
     Dates: start: 20190723
  31. HYDROCORTISONE. [Concomitant]
     Active Substance: HYDROCORTISONE
     Route: 042
     Dates: start: 20200122, end: 20200127

REACTIONS (1)
  - Atrial fibrillation [Recovered/Resolved]

NARRATIVE: CASE EVENT DATE: 20200106
